FAERS Safety Report 14485546 (Version 1)
Quarter: 2018Q1

REPORT INFORMATION
  Report Type: Spontaneous
  Country: US (occurrence: US)
  Receive Date: 20180205
  Receipt Date: 20180205
  Transmission Date: 20180509
  Serious: No
  Sender: FDA-Public Use
  Company Number: US-JNJFOC-20180121147

PATIENT
  Age: 73 Year
  Sex: Female
  Weight: 102.06 kg

DRUGS (3)
  1. ZYRTEC 10MG IR TABLET [Suspect]
     Active Substance: CETIRIZINE HYDROCHLORIDE
     Route: 065
  2. ZYRTEC 10MG IR TABLET [Suspect]
     Active Substance: CETIRIZINE HYDROCHLORIDE
     Indication: RASH
     Dosage: 1 TABLET
     Route: 065
     Dates: start: 20180109, end: 20180109
  3. BENADRYL ULTRATAB [Concomitant]
     Indication: RASH
     Route: 065
     Dates: start: 20180109

REACTIONS (2)
  - Product packaging quantity issue [Unknown]
  - Product use in unapproved indication [Unknown]

NARRATIVE: CASE EVENT DATE: 20180109
